FAERS Safety Report 8460005 (Version 2)
Quarter: 2013Q1

REPORT INFORMATION
  Report Type: Spontaneous
  Country: US (occurrence: None)
  Receive Date: 20120308
  Receipt Date: 20130123
  Transmission Date: 20140127
  Serious: Yes (Hospitalization)
  Sender: FDA-Public Use
  Company Number: 2011SGN00278

PATIENT
  Age: 29 Year
  Sex: Female
  Weight: 58.9 kg

DRUGS (6)
  1. BRENTUXIMAB VEDOTIN [Suspect]
     Indication: HODGKIN^S DISEASE
     Dosage: 1.8 MG/KG, Q21D, INTRAVENOUS
     Route: 042
     Dates: start: 20110314, end: 20111011
  2. ACYCLOVIR [Concomitant]
  3. ALAVERT ALLERGY [Concomitant]
  4. AVIANE (ETHINYLESTRADIOL, LEVONORGESTREL) [Concomitant]
  5. LYRICA [Concomitant]
  6. NEURONTIN [Concomitant]

REACTIONS (2)
  - Pneumonia [None]
  - Human rhinovirus test positive [None]
